FAERS Safety Report 4302659-6 (Version None)
Quarter: 2004Q1

REPORT INFORMATION
  Report Type: 
  Country: None (occurrence: None)
  Receive Date: 20040220
  Receipt Date: 20040207
  Transmission Date: 20041129
  Serious: Yes (Hospitalization, Other)
  Sender: FDA-Public Use
  Company Number: 2004008306

PATIENT
  Age: 43 Year
  Sex: Male
  Weight: 169.1917 kg

DRUGS (8)
  1. LOPID [Suspect]
     Indication: ILL-DEFINED DISORDER
     Dosage: 1800 MG (BID)
  2. METOLAZONE [Concomitant]
  3. QUINAPRIL HCL [Concomitant]
  4. LABETALOL HCL [Concomitant]
  5. SPIRONOLACTONE [Concomitant]
  6. FUROSEMIDE [Concomitant]
  7. DILTIAZEM [Concomitant]
  8. ANTIHYPERTENSIVES [Concomitant]

REACTIONS (4)
  - ELECTROCARDIOGRAM ABNORMAL [None]
  - HEADACHE [None]
  - HYPERTENSION [None]
  - RESPIRATORY DISORDER [None]
